FAERS Safety Report 4759412-9 (Version None)
Quarter: 2005Q3

REPORT INFORMATION
  Report Type: 
  Country: None (occurrence: None)
  Receive Date: 20050831
  Receipt Date: 20050620
  Transmission Date: 20060218
  Serious: Yes (Hospitalization)
  Sender: FDA-Public Use
  Company Number: 050070

PATIENT
  Age: 78 Year
  Sex: Female
  Weight: 70.7611 kg

DRUGS (5)
  1. HALFLYTELY [Suspect]
     Indication: COLONOSCOPY
     Dosage: 20 MG/2L, 1X, PO
     Route: 048
     Dates: start: 20050612
  2. DIOVAN [Concomitant]
  3. FOSAMAX [Concomitant]
  4. PRAVACHOL [Concomitant]
  5. SYNTHROID [Concomitant]

REACTIONS (7)
  - ABDOMINAL DISTENSION [None]
  - DIARRHOEA HAEMORRHAGIC [None]
  - FAECES DISCOLOURED [None]
  - HAEMATOCHEZIA [None]
  - HYPERSENSITIVITY [None]
  - MUSCLE SPASMS [None]
  - PAIN [None]
